FAERS Safety Report 19061034 (Version 4)
Quarter: 2021Q2

REPORT INFORMATION
  Report Type: Report from Study
  Country: US (occurrence: US)
  Receive Date: 20210325
  Receipt Date: 20210611
  Transmission Date: 20210717
  Serious: Yes (Life-Threatening, Hospitalization, Other)
  Sender: FDA-Public Use
  Company Number: US-BRISTOL-MYERS SQUIBB COMPANY-BMS-2021-027719

PATIENT
  Age: 73 Year
  Sex: Male
  Weight: 100.8 kg

DRUGS (5)
  1. GEMCITABINE. [Suspect]
     Active Substance: GEMCITABINE
     Indication: PANCREATIC CARCINOMA
  2. PACLITAXEL. [Suspect]
     Active Substance: PACLITAXEL
     Indication: PANCREATIC CARCINOMA
     Dosage: 225 MILLIGRAM
     Route: 042
     Dates: start: 20210328
  3. PACLITAXEL. [Suspect]
     Active Substance: PACLITAXEL
     Indication: METASTASES TO LIVER
  4. NIVOLUMAB [Suspect]
     Active Substance: NIVOLUMAB
     Indication: PANCREATIC CARCINOMA
     Dosage: 240 MG INFUSION OVER 30 MIN, Q2WK
     Route: 042
     Dates: start: 20200511, end: 20210112
  5. GEMCITABINE. [Suspect]
     Active Substance: GEMCITABINE
     Indication: METASTASES TO LIVER
     Dosage: 1121 MILLIGRAM
     Route: 042
     Dates: start: 20210418

REACTIONS (5)
  - Renal failure [Unknown]
  - Sepsis [Unknown]
  - Clostridium difficile colitis [Unknown]
  - Atrial fibrillation [Unknown]
  - Leukocytosis [Unknown]

NARRATIVE: CASE EVENT DATE: 20210421
